FAERS Safety Report 9240572 (Version 2)
Quarter: 2014Q2

REPORT INFORMATION
  Report Type: Spontaneous
  Country: US (occurrence: US)
  Receive Date: 20130418
  Receipt Date: 20140430
  Transmission Date: 20141212
  Serious: No
  Sender: FDA-Public Use
  Company Number: US-SANOFI-AVENTIS-2012SA061100

PATIENT
  Age: 44 Year
  Sex: Female

DRUGS (2)
  1. ENOXAPARIN SODIUM [Suspect]
     Indication: PULMONARY EMBOLISM
     Dosage: THERAPY START DATE: COUPLE OF WEEKS AGO.
     Route: 065
     Dates: start: 20120815, end: 20120827
  2. WARFARIN [Suspect]
     Indication: PULMONARY EMBOLISM
     Dosage: THERAPY START DATE: COUPLE OF WEEKS AGO.
     Route: 065

REACTIONS (4)
  - International normalised ratio abnormal [Unknown]
  - Injection site erythema [Recovered/Resolved]
  - Injection site pruritus [Recovered/Resolved]
  - Injection site rash [Recovering/Resolving]
